FAERS Safety Report 7634123-0 (Version None)
Quarter: 2011Q3

REPORT INFORMATION
  Report Type: 
  Country: None (occurrence: None)
  Receive Date: 20110725
  Receipt Date: 20110719
  Transmission Date: 20111222
  Serious: Yes (Life-Threatening)
  Sender: FDA-Public Use
  Company Number: CN-ASTRAZENECA-2011SE42084

PATIENT
  Age: 19 Year
  Sex: Male
  Weight: 52 kg

DRUGS (7)
  1. LIDOCAINE [Suspect]
     Indication: LOCAL ANAESTHESIA
     Route: 042
  2. LIDOCAINE [Suspect]
     Indication: THYROIDECTOMY
     Route: 042
  3. LIDOCAINE [Suspect]
     Dosage: A TOTAL OF 25 ML INJECTED FOR BOTH SIDES
     Route: 042
  4. LIDOCAINE [Suspect]
     Route: 042
  5. LIDOCAINE [Suspect]
     Dosage: A TOTAL OF 25 ML INJECTED FOR BOTH SIDES
     Route: 042
  6. BUPIVACAINE HCL [Concomitant]
  7. LIDOCAINE [Suspect]
     Route: 042

REACTIONS (3)
  - ACUTE PULMONARY OEDEMA [None]
  - TOXICITY TO VARIOUS AGENTS [None]
  - GRAND MAL CONVULSION [None]
